FAERS Safety Report 25449505 (Version 1)
Quarter: 2025Q2

REPORT INFORMATION
  Report Type: Spontaneous
  Country: US (occurrence: US)
  Receive Date: 20250618
  Receipt Date: 20250618
  Transmission Date: 20250717
  Serious: Yes (Death, Other)
  Sender: CHATTEM
  Company Number: US-OPELLA-2025OHG018610

PATIENT
  Sex: Female

DRUGS (1)
  1. ZANTAC 75 [Suspect]
     Active Substance: RANITIDINE HYDROCHLORIDE
     Indication: Product used for unknown indication
     Route: 065

REACTIONS (1)
  - Colorectal cancer [Fatal]
